FAERS Safety Report 9405568 (Version 1)
Quarter: 2013Q3

REPORT INFORMATION
  Report Type: Spontaneous
  Country: US (occurrence: US)
  Receive Date: 20130717
  Receipt Date: 20130717
  Transmission Date: 20140515
  Serious: No
  Sender: FDA-Public Use
  Company Number: US-PFIZER INC-2013205659

PATIENT
  Age: 67 Year
  Sex: Female
  Weight: 80.73 kg

DRUGS (2)
  1. ZOLOFT [Suspect]
     Indication: MENTAL DISORDER
     Dosage: 200 MG, 1X/DAY
     Dates: end: 201307
  2. PLAVIX [Concomitant]
     Indication: CARDIAC DISORDER
     Dosage: 75 MG, UNK

REACTIONS (4)
  - Drug withdrawal syndrome [Unknown]
  - Anxiety [Unknown]
  - Affect lability [Unknown]
  - Nerve injury [Unknown]
